FAERS Safety Report 4383238-1 (Version None)
Quarter: 2004Q2

REPORT INFORMATION
  Report Type: 
  Country: None (occurrence: None)
  Receive Date: 20040618
  Receipt Date: 20040611
  Transmission Date: 20050107
  Serious: Yes (Hospitalization)
  Sender: FDA-Public Use
  Company Number: 2004216191RO

PATIENT
  Age: 18 Year
  Sex: Female

DRUGS (2)
  1. GENOTROPIN [Suspect]
     Dosage: UNK, UNK, SUBCUTANEOUS (SEE IMAGE)
     Route: 058
     Dates: start: 19960101, end: 20040501
  2. GENOTROPIN [Suspect]
     Dosage: UNK, UNK, SUBCUTANEOUS (SEE IMAGE)
     Route: 058
     Dates: start: 20040608

REACTIONS (2)
  - APPENDICITIS [None]
  - THROMBOCYTOPENIA [None]
